FAERS Safety Report 14372417 (Version 1)
Quarter: 2018Q1

REPORT INFORMATION
  Report Type: Spontaneous
  Country: US (occurrence: US)
  Receive Date: 20180110
  Receipt Date: 20180110
  Transmission Date: 20180509
  Serious: No
  Sender: FDA-Public Use
  Company Number: US-ASTRAZENECA-2017SF31840

PATIENT
  Age: 24868 Day
  Sex: Female
  Weight: 77.1 kg

DRUGS (1)
  1. BYETTA [Suspect]
     Active Substance: EXENATIDE
     Indication: TYPE 2 DIABETES MELLITUS
     Route: 058

REACTIONS (7)
  - Diarrhoea [Not Recovered/Not Resolved]
  - Product use issue [Unknown]
  - Malaise [Unknown]
  - Drug dose omission [Not Recovered/Not Resolved]
  - Dizziness [Unknown]
  - Circumstance or information capable of leading to medication error [Unknown]
  - Off label use [Unknown]

NARRATIVE: CASE EVENT DATE: 201706
